FAERS Safety Report 8132298-0 (Version None)
Quarter: 2012Q1

REPORT INFORMATION
  Report Type: 
  Country: None (occurrence: None)
  Receive Date: 20120207
  Receipt Date: 20120124
  Transmission Date: 20120608
  Serious: Yes (Other)
  Sender: FDA-Public Use
  Company Number: 1000027592

PATIENT
  Age: 57 Year
  Sex: Female

DRUGS (4)
  1. THYROX (LEVOTHYROXINE SODIUM) (LEVOTHYROXINE SODIUM) [Concomitant]
  2. LEXAPRO [Suspect]
     Indication: DEPRESSION
     Dosage: 10 MG (10 MG, 1 IN 1 D), ORAL
     Route: 048
     Dates: start: 20110901, end: 20120103
  3. ANASTROZOL (ANASTROZOLE) (ANASTROZOLE) [Concomitant]
  4. LEXAPRO [Suspect]
     Indication: DEPRESSION
     Dosage: 5 MG (5 MG, 1 IN 1 D), ORAL
     Route: 048
     Dates: start: 20110624, end: 20110901

REACTIONS (2)
  - SYNCOPE [None]
  - CONFUSIONAL STATE [None]
